FAERS Safety Report 7964552-7 (Version None)
Quarter: 2011Q4

REPORT INFORMATION
  Report Type: 
  Country: None (occurrence: None)
  Receive Date: 20111208
  Receipt Date: 20111129
  Transmission Date: 20120403
  Serious: Yes (Other)
  Sender: FDA-Public Use
  Company Number: PHHY2011FR106074

PATIENT

DRUGS (5)
  1. ANTI-THYMOCYTE GLOBULIN NOS [Concomitant]
     Indication: RENAL TRANSPLANT
  2. STEROIDS NOS [Concomitant]
  3. ORTHOCLONE OKT3 [Concomitant]
     Indication: RENAL TRANSPLANT
  4. CYCLOSPORINE [Suspect]
  5. AZATHIOPRINE [Concomitant]
     Indication: RENAL TRANSPLANT
     Dosage: 2 MEQ/KG/DAY

REACTIONS (3)
  - NEPHROPATHY TOXIC [None]
  - DIABETES MELLITUS [None]
  - TOXICITY TO VARIOUS AGENTS [None]
